FAERS Safety Report 5431049-8 (Version None)
Quarter: 2007Q3

REPORT INFORMATION
  Report Type: 
  Country: None (occurrence: None)
  Receive Date: 20070830
  Receipt Date: 20070124
  Transmission Date: 20080115
  Serious: No
  Sender: FDA-Public Use
  Company Number: A0636892A

PATIENT
  Sex: Female

DRUGS (1)
  1. WELLBUTRIN XL [Suspect]
     Route: 048

REACTIONS (5)
  - APATHY [None]
  - DECREASED INTEREST [None]
  - DEPRESSION [None]
  - DRUG INEFFECTIVE [None]
  - FEELING ABNORMAL [None]
